FAERS Safety Report 18973240 (Version 2)
Quarter: 2021Q1

REPORT INFORMATION
  Report Type: Spontaneous
  Country: JP (occurrence: JP)
  Receive Date: 20210305
  Receipt Date: 20210320
  Transmission Date: 20210420
  Serious: Yes (Death, Hospitalization, Other)
  Sender: FDA-Public Use
  Company Number: JP-ACCORD-218897

PATIENT
  Age: 68 Year
  Sex: Female

DRUGS (2)
  1. PACLITAXEL/PACLITAXEL LIPOSOME [Suspect]
     Active Substance: PACLITAXEL
     Indication: GASTRIC CANCER STAGE III
     Dosage: DAYS 1, 8, 15, EVERY 3 WEEKS
     Dates: start: 2019, end: 2019
  2. RAMUCIRUMAB [Suspect]
     Active Substance: RAMUCIRUMAB
     Indication: GASTRIC CANCER STAGE III
     Dosage: DAYS 1,15, EVERY 3 WEEKS
     Dates: start: 2019, end: 2019

REACTIONS (3)
  - Microangiopathy [Unknown]
  - Spinal epidural haematoma [Recovering/Resolving]
  - Thrombocytopenia [Unknown]

NARRATIVE: CASE EVENT DATE: 2019
